FAERS Safety Report 14195611 (Version 1)
Quarter: 2017Q4

REPORT INFORMATION
  Report Type: Spontaneous
  Country: US (occurrence: US)
  Receive Date: 20171116
  Receipt Date: 20171116
  Transmission Date: 20180321
  Serious: No
  Sender: FDA-Public Use
  Company Number: US-BAUSCH-BL-2017-010915

PATIENT
  Sex: Male
  Weight: 27.24 kg

DRUGS (3)
  1. XENAZINE [Suspect]
     Active Substance: TETRABENAZINE
     Indication: CHOREA
     Dosage: 25 MG TABLET ORALLY IN THE MORNING AND AT NIGHT AND A HALF TABLET IN THE AFTERNOON
     Route: 048
     Dates: start: 201105
  2. FOCALINE XR [Concomitant]
     Indication: PRODUCT USED FOR UNKNOWN INDICATION
     Route: 048
  3. XENAZINE [Suspect]
     Active Substance: TETRABENAZINE
     Route: 048

REACTIONS (2)
  - Somnolence [Unknown]
  - Fall [Unknown]
